FAERS Safety Report 24873063 (Version 1)
Quarter: 2025Q1

REPORT INFORMATION
  Report Type: Spontaneous
  Country: GB (occurrence: GB)
  Receive Date: 20250122
  Receipt Date: 20250122
  Transmission Date: 20250409
  Serious: Yes (Other)
  Sender: ACCORD
  Company Number: None

PATIENT
  Age: 74 Year
  Sex: Female

DRUGS (15)
  1. AMITRIPTYLINE [Suspect]
     Active Substance: AMITRIPTYLINE
     Indication: Product used for unknown indication
  2. MIRTAZAPINE [Suspect]
     Active Substance: MIRTAZAPINE
     Indication: Product used for unknown indication
  3. PROCHLORPERAZINE [Suspect]
     Active Substance: PROCHLORPERAZINE
     Indication: Product used for unknown indication
  4. SERTRALINE [Suspect]
     Active Substance: SERTRALINE HYDROCHLORIDE
     Indication: Product used for unknown indication
  5. LORAZEPAM [Suspect]
     Active Substance: LORAZEPAM
     Indication: Product used for unknown indication
  6. AZITHROMYCIN [Concomitant]
     Active Substance: AZITHROMYCIN
  7. ACETYLCYSTEINE [Concomitant]
     Active Substance: ACETYLCYSTEINE
  8. ALBUTEROL [Concomitant]
     Active Substance: ALBUTEROL
  9. ALENDRONIC ACID [Concomitant]
     Active Substance: ALENDRONIC ACID
  10. FUROSEMIDE [Concomitant]
     Active Substance: FUROSEMIDE
  11. OXYCODONE [Concomitant]
     Active Substance: OXYCODONE
  12. LOSARTAN [Concomitant]
     Active Substance: LOSARTAN
  13. CHOLECALCIFEROL [Concomitant]
     Active Substance: CHOLECALCIFEROL
  14. LANSOPRAZOLE [Concomitant]
     Active Substance: LANSOPRAZOLE
  15. BECLOMETASONE, FORMOTEROL, GLYCOPYRRONIUM [Concomitant]

REACTIONS (1)
  - Electrocardiogram QT prolonged [Recovered/Resolved]
